FAERS Safety Report 13472460 (Version 1)
Quarter: 2017Q2

REPORT INFORMATION
  Report Type: Spontaneous
  Country: US (occurrence: US)
  Receive Date: 20170422
  Receipt Date: 20170422
  Transmission Date: 20170830
  Serious: Yes (Hospitalization, Disabling, Other)
  Sender: FDA-Public Use
  Company Number: None

PATIENT
  Age: 47 Year
  Sex: Female
  Weight: 60.3 kg

DRUGS (3)
  1. NEW CHEMO [Concomitant]
  2. TAMOXIFEN [Suspect]
     Active Substance: TAMOXIFEN
     Indication: PROPHYLAXIS
     Dosage: ?          QUANTITY:30 TABLET(S); AT BEDTIME ORAL?
     Route: 048
     Dates: end: 20161026
  3. TAMOXIFEN [Suspect]
     Active Substance: TAMOXIFEN
     Indication: BREAST CANCER
     Dosage: ?          QUANTITY:30 TABLET(S); AT BEDTIME ORAL?
     Route: 048
     Dates: end: 20161026

REACTIONS (2)
  - Breast cancer stage IV [None]
  - Product quality issue [None]

NARRATIVE: CASE EVENT DATE: 20170106
